FAERS Safety Report 5847843-5 (Version None)
Quarter: 2008Q3

REPORT INFORMATION
  Report Type: 
  Country: None (occurrence: None)
  Receive Date: 20080818
  Receipt Date: 20080808
  Transmission Date: 20090109
  Serious: Yes (Hospitalization, Other)
  Sender: FDA-Public Use
  Company Number: FR-AVENTIS-200817553GDDC

PATIENT
  Age: 61 Year
  Sex: Male
  Weight: 90 kg

DRUGS (13)
  1. AFLIBERCEPT [Suspect]
     Route: 042
     Dates: start: 20080718, end: 20080718
  2. TAXOTERE [Suspect]
     Route: 042
     Dates: start: 20080718, end: 20080718
  3. BIPHOSPHONATES [Suspect]
     Dosage: DOSE: UNK
     Route: 048
     Dates: start: 20070701, end: 20080310
  4. ZOMETA [Suspect]
     Route: 042
     Dates: start: 20060601, end: 20070701
  5. ZOMETA [Suspect]
     Route: 042
     Dates: start: 20080310, end: 20080312
  6. GLUCOPHAGE [Concomitant]
     Route: 048
     Dates: start: 20051026
  7. NOVONORM [Concomitant]
     Route: 058
     Dates: start: 20070706
  8. TAHOR [Concomitant]
     Indication: HYPERTENSION
     Route: 048
  9. COAPROVEL [Concomitant]
     Indication: HYPERTENSION
     Route: 048
     Dates: start: 20080504
  10. ZOMETA [Concomitant]
     Indication: OSTEOLYSIS
     Dosage: DOSE: UNK
     Route: 048
     Dates: start: 20070101, end: 20080101
  11. ZOMETA [Concomitant]
     Route: 042
     Dates: start: 20080310, end: 20080310
  12. INIMOD [Concomitant]
     Route: 048
     Dates: start: 20071218
  13. ARANESP [Concomitant]
     Route: 058
     Dates: start: 20080310

REACTIONS (2)
  - PAIN [None]
  - PERIODONTAL DISEASE [None]
